FAERS Safety Report 21973529 (Version 4)
Quarter: 2023Q1

REPORT INFORMATION
  Report Type: Spontaneous
  Country: US (occurrence: US)
  Receive Date: 20230209
  Receipt Date: 20230321
  Transmission Date: 20230418
  Serious: Yes (Other)
  Sender: FDA-Public Use
  Company Number: US-PFIZER INC-202101648198

PATIENT
  Age: 72 Year
  Sex: Female

DRUGS (1)
  1. IBRANCE [Suspect]
     Active Substance: PALBOCICLIB
     Indication: Breast cancer metastatic
     Dosage: 125 MG

REACTIONS (10)
  - Nausea [Unknown]
  - Taste disorder [Unknown]
  - Appetite disorder [Unknown]
  - Weight fluctuation [Unknown]
  - Neoplasm progression [Unknown]
  - Stress [Unknown]
  - Feeling abnormal [Unknown]
  - Psychiatric symptom [Unknown]
  - Fear [Unknown]
  - Initial insomnia [Unknown]
